FAERS Safety Report 12461746 (Version 1)
Quarter: 2016Q2

REPORT INFORMATION
  Report Type: Spontaneous
  Country: US (occurrence: US)
  Receive Date: 20160613
  Receipt Date: 20160613
  Transmission Date: 20160815
  Serious: Yes (Death, Hospitalization, Other)
  Sender: FDA-Public Use
  Company Number: US-IMPAX LABORATORIES, INC-2016-IPXL-00586

PATIENT
  Age: 67 Year
  Sex: Male

DRUGS (1)
  1. METHADONE HYDROCHLORIDE. [Suspect]
     Active Substance: METHADONE HYDROCHLORIDE
     Indication: DRUG DEPENDENCE
     Dosage: UNK
     Route: 065

REACTIONS (6)
  - Lactic acidosis [Fatal]
  - Renal failure [Fatal]
  - Intestinal ischaemia [Fatal]
  - Abdominal compartment syndrome [Fatal]
  - Megacolon [Fatal]
  - Clostridium difficile infection [Fatal]
